FAERS Safety Report 15664295 (Version 1)
Quarter: 2018Q4

REPORT INFORMATION
  Report Type: Report from Study
  Country: None (occurrence: CA)
  Receive Date: 20181128
  Receipt Date: 20181128
  Transmission Date: 20190205
  Serious: Yes (Hospitalization)
  Sender: FDA-Public Use
  Company Number: CA-ABBVIE-18P-028-2563171-00

PATIENT
  Age: 15 Year
  Sex: Male
  Weight: 57.7 kg

DRUGS (60)
  1. VENETOCLAX. [Suspect]
     Active Substance: VENETOCLAX
     Route: 048
     Dates: start: 20180511, end: 20180615
  2. CYTARABINE. [Suspect]
     Active Substance: CYTARABINE
     Indication: RECURRENT CANCER
     Route: 042
     Dates: start: 20180430, end: 20180509
  3. ACETAMINOPHENE [Concomitant]
     Indication: TRANSFUSION
  4. CASPOFUNGIN [Concomitant]
     Active Substance: CASPOFUNGIN
     Indication: ANTIFUNGAL PROPHYLAXIS
     Route: 042
     Dates: start: 20180216
  5. CLOXACILLINE [Concomitant]
     Active Substance: CLOXACILLIN
     Indication: FEBRILE NEUTROPENIA
     Route: 042
     Dates: start: 20180324, end: 20180324
  6. NABILONE CAPSULES [Concomitant]
     Route: 048
     Dates: start: 20180421
  7. RANITIDINE. [Concomitant]
     Active Substance: RANITIDINE
     Indication: GASTROOESOPHAGEAL REFLUX PROPHYLAXIS
     Route: 042
     Dates: start: 20180107
  8. ZINC GLUCONATE [Concomitant]
     Active Substance: ZINC GLUCONATE
     Indication: PROMOTION OF WOUND HEALING
     Route: 048
     Dates: start: 20180413
  9. VENETOCLAX. [Suspect]
     Active Substance: VENETOCLAX
     Route: 048
     Dates: start: 20180425, end: 20180504
  10. ACETAMINOPHENE [Concomitant]
     Indication: INFLUENZA LIKE ILLNESS
     Dosage: PRN
     Route: 048
     Dates: start: 20171129
  11. ACETAMINOPHENE [Concomitant]
     Indication: HEADACHE
  12. CLOXACILLINE [Concomitant]
     Active Substance: CLOXACILLIN
     Route: 042
     Dates: start: 20180324, end: 20180417
  13. DIPHENHYDRAMINE. [Concomitant]
     Active Substance: DIPHENHYDRAMINE
     Indication: TRANSFUSION
     Dosage: TRANSFUSION PREMEDICATION
     Route: 042
     Dates: start: 20180105
  14. DIPHENHYDRAMINE. [Concomitant]
     Active Substance: DIPHENHYDRAMINE
     Indication: ALLERGY PROPHYLAXIS
     Dosage: PRN
     Route: 048
     Dates: start: 20180107
  15. HEPARIN LOCK [Concomitant]
     Indication: CATHETER MANAGEMENT
     Route: 042
     Dates: start: 20180116
  16. PREGABALIN CAPSULE [Concomitant]
     Indication: PAIN
     Route: 048
     Dates: start: 20180327
  17. RANITIDINE. [Concomitant]
     Active Substance: RANITIDINE
     Indication: ANTACID THERAPY
     Route: 048
     Dates: start: 20180315
  18. SERTRALINE [Concomitant]
     Active Substance: SERTRALINE HYDROCHLORIDE
     Indication: ANTIDEPRESSANT THERAPY
     Route: 048
     Dates: start: 20140115, end: 20180114
  19. VANCOMYCINE [Concomitant]
     Active Substance: VANCOMYCIN
     Indication: FEBRILE NEUTROPENIA
     Route: 042
     Dates: start: 20180107
  20. VENETOCLAX. [Suspect]
     Active Substance: VENETOCLAX
     Indication: REFRACTORY CANCER
     Route: 050
     Dates: start: 20171130, end: 20171130
  21. CEPACOL [Concomitant]
     Active Substance: BENZOCAINE
     Indication: OROPHARYNGEAL PAIN
     Dosage: PRN
     Route: 048
     Dates: start: 20171130
  22. LORAZEPAM SUBLINGUAL [Concomitant]
     Indication: PROPHYLAXIS
     Dosage: PRN
     Route: 060
     Dates: start: 20180324
  23. VITAMIN D [Concomitant]
     Active Substance: CHOLECALCIFEROL
     Indication: VITAMIN SUPPLEMENTATION
     Route: 048
     Dates: start: 20140115
  24. VENETOCLAX. [Suspect]
     Active Substance: VENETOCLAX
     Route: 048
     Dates: start: 20180814, end: 20180814
  25. CYTARABINE. [Suspect]
     Active Substance: CYTARABINE
     Indication: REFRACTORY CANCER
     Route: 042
     Dates: start: 20180526, end: 20180604
  26. ACETAMINOPHENE [Concomitant]
     Indication: PYREXIA
  27. ACETAMINOPHENE [Concomitant]
     Indication: ANTIPYRESIS
  28. ACETAMINOPHENE [Concomitant]
     Indication: PAIN
  29. BENADRYL [Concomitant]
     Active Substance: DIPHENHYDRAMINE HYDROCHLORIDE
     Indication: TRANSFUSION
     Dosage: BEFORE TRANSFUSION
     Route: 042
     Dates: start: 20171201
  30. BENADRYL [Concomitant]
     Active Substance: DIPHENHYDRAMINE HYDROCHLORIDE
     Indication: PREMEDICATION
  31. DIPHENHYDRAMINE. [Concomitant]
     Active Substance: DIPHENHYDRAMINE
     Indication: PREMEDICATION
  32. DOCUSATE SODIUM CAPSULE [Concomitant]
     Indication: CONSTIPATION PROPHYLAXIS
     Route: 048
     Dates: start: 20180312
  33. CETIRIZINE TABLET [Concomitant]
     Route: 048
     Dates: start: 20180326
  34. CLOXACILLINE [Concomitant]
     Active Substance: CLOXACILLIN
     Route: 048
     Dates: start: 20180417, end: 20180426
  35. NYSTATIN. [Concomitant]
     Active Substance: NYSTATIN
     Indication: PROPHYLAXIS
     Route: 048
     Dates: start: 20170715
  36. VENETOCLAX. [Suspect]
     Active Substance: VENETOCLAX
     Route: 050
     Dates: start: 20180104, end: 20180412
  37. VENETOCLAX. [Suspect]
     Active Substance: VENETOCLAX
     Route: 048
     Dates: start: 20180815
  38. CETIRIZINE TABLET [Concomitant]
     Indication: PRURITUS
     Dosage: PRN
     Route: 048
     Dates: start: 20180215, end: 20180222
  39. NABILONE CAPSULES [Concomitant]
     Indication: PAIN
     Route: 048
     Dates: start: 20180323, end: 20180420
  40. NYSTATIN. [Concomitant]
     Active Substance: NYSTATIN
     Dosage: SWAB IN MOUTH
     Route: 048
  41. PENTAMIDINE [Concomitant]
     Active Substance: PENTAMIDINE
     Indication: INFECTION PROPHYLAXIS
     Route: 042
     Dates: start: 20171115, end: 20180824
  42. VENETOCLAX. [Suspect]
     Active Substance: VENETOCLAX
     Route: 050
     Dates: start: 20171201, end: 20180103
  43. VENETOCLAX. [Suspect]
     Active Substance: VENETOCLAX
     Route: 048
     Dates: start: 20180413, end: 20180424
  44. VENETOCLAX. [Suspect]
     Active Substance: VENETOCLAX
     Route: 048
     Dates: start: 20180628, end: 20180813
  45. AZACITIDINE. [Suspect]
     Active Substance: AZACITIDINE
     Indication: RECURRENT CANCER
     Route: 042
     Dates: start: 20180104, end: 20180108
  46. CETIRIZINE TABLET [Concomitant]
     Indication: ALLERGY PROPHYLAXIS
     Dosage: PRN
     Route: 048
     Dates: start: 20180311, end: 20180315
  47. GRANISETRON [Concomitant]
     Active Substance: GRANISETRON
     Indication: PROPHYLAXIS OF NAUSEA AND VOMITING
     Dosage: PRN
     Route: 048
     Dates: start: 20170214
  48. GRANISETRON [Concomitant]
     Active Substance: GRANISETRON
     Indication: PROPHYLAXIS OF NAUSEA AND VOMITING
  49. PEG3350 (POLYETHYLENE GLYCOL) [Concomitant]
     Indication: CONSTIPATION
     Dosage: PRN
     Route: 048
     Dates: start: 20110815
  50. SERTRALINE [Concomitant]
     Active Substance: SERTRALINE HYDROCHLORIDE
     Indication: PROPHYLAXIS
     Route: 048
     Dates: start: 20180115
  51. VENETOCLAX. [Suspect]
     Active Substance: VENETOCLAX
     Indication: RECURRENT CANCER
     Route: 050
     Dates: start: 20171129, end: 20171129
  52. VENETOCLAX. [Suspect]
     Active Substance: VENETOCLAX
     Route: 048
     Dates: start: 20180505, end: 20180510
  53. AZACITIDINE. [Suspect]
     Active Substance: AZACITIDINE
     Indication: REFRACTORY CANCER
     Route: 042
     Dates: start: 20180223, end: 20180226
  54. ACETAMINOPHENE [Concomitant]
     Indication: PREMEDICATION
  55. ATIVAN [Concomitant]
     Active Substance: LORAZEPAM
     Indication: ANXIOLYTIC THERAPY
     Dosage: PRN
     Route: 048
     Dates: start: 20180112
  56. CLOXACILLINE [Concomitant]
     Active Substance: CLOXACILLIN
     Route: 048
     Dates: start: 20180526
  57. LORAZEPAM SUBLINGUAL [Concomitant]
     Indication: ANXIOLYTIC THERAPY
  58. MELATONIN [Concomitant]
     Active Substance: MELATONIN
     Indication: INSOMNIA
     Route: 048
     Dates: start: 20170615
  59. SELENIUM [Concomitant]
     Active Substance: SELENIUM
     Indication: PROMOTION OF WOUND HEALING
     Route: 048
     Dates: start: 20180405
  60. TUMS [Concomitant]
     Active Substance: CALCIUM CARBONATE
     Indication: GASTROOESOPHAGEAL REFLUX DISEASE
     Route: 048
     Dates: start: 20171215

REACTIONS (1)
  - Cellulitis [Recovered/Resolved]

NARRATIVE: CASE EVENT DATE: 20180824
